FAERS Safety Report 6980041-0 (Version None)
Quarter: 2010Q3

REPORT INFORMATION
  Report Type: 
  Country: None (occurrence: None)
  Receive Date: 20100914
  Receipt Date: 20100901
  Transmission Date: 20110219
  Serious: Yes (Hospitalization, Other)
  Sender: FDA-Public Use
  Company Number: US-PFIZER INC-2008089739

PATIENT
  Sex: Male
  Weight: 102.95 kg

DRUGS (23)
  1. ZOLOFT [Suspect]
     Indication: PANIC ATTACK
     Dosage: 150 MG, 1X/DAY
     Route: 048
  2. ZOLOFT [Suspect]
     Indication: ANXIETY
     Dosage: UNK
  3. ZOLOFT [Suspect]
     Indication: DEPRESSION
  4. ZOLOFT [Suspect]
     Indication: ACTIVITIES OF DAILY LIVING IMPAIRED
  5. CHANTIX [Suspect]
     Indication: SMOKING CESSATION THERAPY
     Dosage: 0.5 MG, 1X/DAY
     Route: 048
  6. WELLBUTRIN [Suspect]
     Indication: DEPRESSION
     Dosage: UNK
  7. METFORMIN [Concomitant]
     Dosage: UNK
  8. GLIMEPIRIDE [Concomitant]
  9. PREVACID [Concomitant]
     Dosage: UNK
  10. ALLEGRA [Concomitant]
     Dosage: UNK
  11. LISINOPRIL [Concomitant]
     Dosage: UNK
  12. FENOFIBRATE [Concomitant]
  13. NORVASC [Concomitant]
  14. PLAVIX [Concomitant]
  15. POTASSIUM [Concomitant]
     Dosage: UNK
  16. LASIX [Concomitant]
     Dosage: UNK
  17. NITROGLYCERIN [Concomitant]
     Route: 060
  18. ACETYLSALICYLIC ACID [Concomitant]
     Dosage: UNK
  19. NEURONTIN [Concomitant]
     Dosage: UNK
  20. ASPIRIN [Concomitant]
     Dosage: UNK
  21. LYRICA [Concomitant]
     Dosage: UNK
  22. VYTORIN [Concomitant]
     Dosage: 10/40 MG, UNK
  23. XANAX [Concomitant]

REACTIONS (6)
  - CARDIAC FAILURE [None]
  - CEREBROVASCULAR ACCIDENT [None]
  - DIABETES MELLITUS [None]
  - HYPERSENSITIVITY [None]
  - HYPERTENSION [None]
  - MYOCARDIAL INFARCTION [None]
